FAERS Safety Report 24180039 (Version 1)
Quarter: 2024Q3

REPORT INFORMATION
  Report Type: Spontaneous
  Country: KZ (occurrence: KZ)
  Receive Date: 20240806
  Receipt Date: 20240806
  Transmission Date: 20241017
  Serious: Yes (Death, Hospitalization, Congenital Anomaly, Other)
  Sender: ROCHE
  Company Number: KZ-ROCHE-10000045965

PATIENT
  Sex: Male
  Weight: 4.02 kg

DRUGS (1)
  1. TAMIFLU [Suspect]
     Active Substance: OSELTAMIVIR PHOSPHATE
     Indication: Product used for unknown indication
     Route: 064

REACTIONS (24)
  - Foetal exposure during pregnancy [Unknown]
  - Anaemia [Unknown]
  - Poisoning [Unknown]
  - Malnutrition [Unknown]
  - Weight decreased [Unknown]
  - Renal fusion anomaly [Unknown]
  - Hypertransaminasaemia [Unknown]
  - Metabolic acidosis [Unknown]
  - Candida infection [Unknown]
  - Acinetobacter infection [Unknown]
  - Staphylococcal infection [Unknown]
  - Subependymal cyst [Unknown]
  - Enteritis [Unknown]
  - Dystonia [Unknown]
  - Dwarfism [Unknown]
  - Sepsis [Fatal]
  - Gastrointestinal disorder congenital [Fatal]
  - Hyperchloraemia [Unknown]
  - Bundle branch block right [Unknown]
  - Electrocardiogram repolarisation abnormality [Unknown]
  - Cholestasis [Unknown]
  - Hypoxic-ischaemic encephalopathy [Unknown]
  - Motor developmental delay [Unknown]
  - Conduction disorder [Unknown]
